FAERS Safety Report 8848078 (Version 1)
Quarter: 2012Q4

REPORT INFORMATION
  Report Type: 
  Country: US (occurrence: US)
  Receive Date: 20121018
  Receipt Date: 20121018
  Transmission Date: 20130627
  Serious: Yes (Other)
  Sender: FDA-Public Use
  Company Number: US-BAYER-2012-106835

PATIENT

DRUGS (4)
  1. ALEVE CAPLET/TABLET,MIDOL EXTENDED RELIEF CAPLET [Suspect]
     Dosage: 5 DF, UNK
  2. TYLENOL [Suspect]
     Dosage: 15 DF, UNK
  3. TYLENOL [Suspect]
     Dosage: 10 UNK, UNK
  4. ADVIL [Suspect]
     Dosage: 20 DF, UNK

REACTIONS (1)
  - No adverse event [None]
